FAERS Safety Report 5670282-7 (Version None)
Quarter: 2008Q1

REPORT INFORMATION
  Report Type: 
  Country: None (occurrence: None)
  Receive Date: 20080318
  Receipt Date: 20080312
  Transmission Date: 20080703
  Serious: Yes (Other)
  Sender: FDA-Public Use
  Company Number: JP-BAYER-200810459BYL

PATIENT
  Age: 32 Year
  Sex: Female

DRUGS (2)
  1. NIFEDIPINE [Suspect]
     Indication: HYPERTENSION
     Route: 048
  2. METHYLDOPA [Concomitant]
     Indication: HYPERTENSION
     Route: 065

REACTIONS (5)
  - ADRENAL ADENOMA [None]
  - CUSHING'S SYNDROME [None]
  - DRUG EXPOSURE DURING PREGNANCY [None]
  - FOETAL GROWTH RETARDATION [None]
  - PREGNANCY [None]
